FAERS Safety Report 7694050-X (Version None)
Quarter: 2011Q3

REPORT INFORMATION
  Report Type: 
  Country: None (occurrence: None)
  Receive Date: 20110819
  Receipt Date: 20110810
  Transmission Date: 20111222
  Serious: Yes (Disabling)
  Sender: FDA-Public Use
  Company Number: FR-JNJFOC-20110805655

PATIENT
  Age: 54 Year
  Sex: Female
  Weight: 77 kg

DRUGS (4)
  1. REMICADE [Suspect]
     Indication: COLITIS ULCERATIVE
     Route: 042
     Dates: start: 20110722
  2. REMICADE [Suspect]
     Route: 042
     Dates: start: 20110622
  3. REMICADE [Suspect]
     Route: 042
     Dates: start: 20110609
  4. PREDNISONE [Concomitant]
     Indication: COLITIS ULCERATIVE
     Route: 048

REACTIONS (4)
  - BREAST PAIN [None]
  - VITREOUS DETACHMENT [None]
  - EYE PAIN [None]
  - LACRIMATION INCREASED [None]
